FAERS Safety Report 5395711-8 (Version None)
Quarter: 2007Q3

REPORT INFORMATION
  Report Type: 
  Country: None (occurrence: None)
  Receive Date: 20070724
  Receipt Date: 20070719
  Transmission Date: 20080115
  Serious: Yes (Death)
  Sender: FDA-Public Use
  Company Number: KR-GENENTECH-244838

PATIENT
  Age: 58 Year

DRUGS (1)
  1. METALYSE [Suspect]
     Indication: CARDIO-RESPIRATORY ARREST
     Dates: start: 20041101, end: 20041101

REACTIONS (1)
  - DEATH [None]
